FAERS Safety Report 10051142 (Version 2)
Quarter: 2014Q2

REPORT INFORMATION
  Report Type: Report from Study
  Country: US (occurrence: US)
  Receive Date: 20140401
  Receipt Date: 20140401
  Transmission Date: 20141212
  Serious: Yes (Other)
  Sender: FDA-Public Use
  Company Number: US-ALEXION PHARMACEUTICALS INC.-A201000614

PATIENT
  Sex: 0

DRUGS (7)
  1. SOLIRIS [Suspect]
     Indication: PAROXYSMAL NOCTURNAL HAEMOGLOBINURIA
     Dosage: 600 MG, QW
     Route: 042
     Dates: start: 20071219, end: 20080109
  2. SOLIRIS [Suspect]
     Dosage: 900 MG, Q2W
     Route: 042
     Dates: start: 20080123
  3. SOLIRIS [Suspect]
     Dosage: UNK
     Dates: start: 200912, end: 200912
  4. SOLIRIS [Suspect]
     Dosage: UNK
     Dates: start: 201004, end: 201004
  5. B12 [Concomitant]
     Dosage: UNK
     Route: 048
  6. IRON [Concomitant]
     Dosage: UNK
     Route: 048
  7. FOLIC ACID [Concomitant]
     Dosage: UNK
     Route: 048

REACTIONS (2)
  - Haemoglobin decreased [Unknown]
  - Haemoglobinuria [Recovered/Resolved]
